FAERS Safety Report 23621571 (Version 2)
Quarter: 2024Q1

REPORT INFORMATION
  Report Type: Spontaneous
  Country: IT (occurrence: IT)
  Receive Date: 20240312
  Receipt Date: 20240319
  Transmission Date: 20240410
  Serious: Yes (Other)
  Sender: FDA-Public Use
  Company Number: IT-MINISAL02-957232

PATIENT
  Age: 81 Year
  Sex: Female
  Weight: 50 kg

DRUGS (3)
  1. OXALIPLATIN [Suspect]
     Active Substance: OXALIPLATIN
     Indication: Gastric cancer
     Dosage: 63.33 MG EVERY 14 DAYS
     Route: 040
     Dates: start: 20230919, end: 20231114
  2. NIVOLUMAB [Suspect]
     Active Substance: NIVOLUMAB
     Indication: Gastric cancer
     Dosage: 240 MG EVERY 14 DAYS
     Route: 040
     Dates: start: 20230919, end: 20231114
  3. FLUOROURACIL [Suspect]
     Active Substance: FLUOROURACIL
     Indication: Gastric cancer
     Dosage: 1788 MG CI 46 H EVERY 14 DAYS + 298 MG PUSH EVERY 14 DAYS
     Route: 040
     Dates: start: 20230919, end: 20231114

REACTIONS (3)
  - Tendon rupture [Not Recovered/Not Resolved]
  - Peripheral swelling [Not Recovered/Not Resolved]
  - Joint effusion [Not Recovered/Not Resolved]

NARRATIVE: CASE EVENT DATE: 20231114
